FAERS Safety Report 19556816 (Version 1)
Quarter: 2021Q3

REPORT INFORMATION
  Report Type: Spontaneous
  Country: US (occurrence: US)
  Receive Date: 20210715
  Receipt Date: 20210715
  Transmission Date: 20211014
  Serious: No
  Sender: FDA-Public Use
  Company Number: US-ELI_LILLY_AND_COMPANY-US202107006575

PATIENT
  Sex: Female

DRUGS (9)
  1. EMGALITY [Suspect]
     Active Substance: GALCANEZUMAB-GNLM
     Indication: MIGRAINE
     Dosage: 120 MG, MONTHLY (1/M)
     Route: 065
     Dates: start: 2019
  2. EMGALITY [Suspect]
     Active Substance: GALCANEZUMAB-GNLM
     Dosage: 240 MG, MONTHLY (1/M)
     Route: 065
  3. UBRELVY [Concomitant]
     Active Substance: UBROGEPANT
     Indication: MIGRAINE
  4. EMGALITY [Suspect]
     Active Substance: GALCANEZUMAB-GNLM
     Dosage: 120 MG, OTHER, EVERY TWO WEEKS
     Route: 065
  5. EMGALITY [Suspect]
     Active Substance: GALCANEZUMAB-GNLM
     Dosage: 120 MG, OTHER, EVERY TWO WEEKS
     Route: 065
  6. EMGALITY [Suspect]
     Active Substance: GALCANEZUMAB-GNLM
     Dosage: 240 MG, MONTHLY (1/M)
     Route: 065
  7. EMGALITY [Suspect]
     Active Substance: GALCANEZUMAB-GNLM
     Dosage: UNK UNK, UNKNOWN
     Route: 065
  8. EMGALITY [Suspect]
     Active Substance: GALCANEZUMAB-GNLM
     Dosage: UNK UNK, UNKNOWN
     Route: 065
  9. EMGALITY [Suspect]
     Active Substance: GALCANEZUMAB-GNLM
     Indication: MIGRAINE
     Dosage: 120 MG, MONTHLY (1/M)
     Route: 065
     Dates: start: 2019

REACTIONS (3)
  - Prescribed overdose [Unknown]
  - Migraine [Unknown]
  - Inappropriate schedule of product administration [Unknown]
